FAERS Safety Report 26080403 (Version 2)
Quarter: 2025Q4

REPORT INFORMATION
  Report Type: Report from Study
  Country: CA (occurrence: CA)
  Receive Date: 20251124
  Receipt Date: 20251205
  Transmission Date: 20260118
  Serious: Yes (Death, Hospitalization, Other)
  Sender: TOLMAR
  Company Number: CA-20251113-6291e6, TLM-2025-08869(0)

PATIENT
  Sex: Male

DRUGS (3)
  1. ELIGARD [Suspect]
     Active Substance: LEUPROLIDE ACETATE
     Indication: Prostate cancer
     Dosage: 22.5 MG, EVERY 3 MONTHS
     Route: 058
     Dates: start: 20250826
  2. ELIGARD [Suspect]
     Active Substance: LEUPROLIDE ACETATE
     Dosage: 22.5 MG, EVERY 3 MONTHS
     Route: 058
     Dates: start: 20230425
  3. DEVICE [Suspect]
     Active Substance: DEVICE
     Indication: Prostate cancer

REACTIONS (3)
  - Death [Fatal]
  - Pyelonephritis [Unknown]
  - Clostridium difficile infection [Unknown]
